FAERS Safety Report 4897793-6 (Version None)
Quarter: 2006Q1

REPORT INFORMATION
  Report Type: 
  Country: None (occurrence: None)
  Receive Date: 20060130
  Receipt Date: 20060130
  Transmission Date: 20060701
  Serious: Yes (Other)
  Sender: FDA-Public Use
  Company Number: None

PATIENT
  Age: 10 Year
  Sex: Female
  Weight: 67.586 kg

DRUGS (1)
  1. AUGMENTIN '875' [Suspect]
     Indication: URINARY TRACT INFECTION
     Dosage: 875 MG PO BID
     Route: 048
     Dates: start: 20060124, end: 20060127

REACTIONS (4)
  - ABDOMINAL PAIN [None]
  - DRUG INTOLERANCE [None]
  - NAUSEA [None]
  - THERAPEUTIC RESPONSE UNEXPECTED WITH DRUG SUBSTITUTION [None]
